FAERS Safety Report 7607314-2 (Version None)
Quarter: 2011Q3

REPORT INFORMATION
  Report Type: 
  Country: None (occurrence: None)
  Receive Date: 20110712
  Receipt Date: 20110712
  Transmission Date: 20111222
  Serious: Yes (Hospitalization)
  Sender: FDA-Public Use
  Company Number: None

PATIENT
  Sex: Female
  Weight: 52.6 kg

DRUGS (4)
  1. ONDANSETRON [Concomitant]
  2. DOXORUBICIN HCL [Concomitant]
  3. SODIUM THIOSULFATE [Suspect]
     Dosage: 50 G
  4. CISPLATIN [Concomitant]

REACTIONS (6)
  - DEHYDRATION [None]
  - DIZZINESS [None]
  - DECREASED APPETITE [None]
  - HYPONATRAEMIA [None]
  - DRUG INEFFECTIVE [None]
  - NAUSEA [None]
